FAERS Safety Report 20383032 (Version 2)
Quarter: 2022Q1

REPORT INFORMATION
  Report Type: Spontaneous
  Country: CZ (occurrence: CZ)
  Receive Date: 20220127
  Receipt Date: 20220202
  Transmission Date: 20220423
  Serious: Yes (Other)
  Sender: FDA-Public Use
  Company Number: CZ-NOVARTISPH-NVSC2022CZ014815

PATIENT
  Sex: Male

DRUGS (19)
  1. ENTRESTO [Suspect]
     Active Substance: SACUBITRIL\VALSARTAN
     Indication: Cardiac failure
     Dosage: 24/26 MG, BID
     Route: 065
     Dates: start: 20180704, end: 20180801
  2. ENTRESTO [Suspect]
     Active Substance: SACUBITRIL\VALSARTAN
     Dosage: 49/51 MG, UNKNOWN
     Route: 065
     Dates: start: 20180801
  3. ENTRESTO [Suspect]
     Active Substance: SACUBITRIL\VALSARTAN
     Dosage: 24/26 MG, BID
     Route: 065
     Dates: start: 20210930, end: 202112
  4. ENTRESTO [Suspect]
     Active Substance: SACUBITRIL\VALSARTAN
     Dosage: 49/51 MG, BID
     Route: 065
     Dates: start: 202112
  5. EPLERENONE ACTAVIS [Concomitant]
     Indication: Breast pain
     Dosage: 25 MG, QD
     Route: 065
     Dates: start: 20180704
  6. BISOPROLOL FUMARATE [Concomitant]
     Active Substance: BISOPROLOL FUMARATE
     Indication: Cardiac failure
     Dosage: 2.5 MG
     Route: 065
  7. BISOPROLOL FUMARATE [Concomitant]
     Active Substance: BISOPROLOL FUMARATE
     Dosage: 5 MG, QD (1-0-0)
     Route: 065
     Dates: start: 201807
  8. BISOPROLOL FUMARATE [Concomitant]
     Active Substance: BISOPROLOL FUMARATE
     Dosage: 10 MG, QD (1-0-0)
     Route: 065
     Dates: end: 20211001
  9. LANSOPRAZOLE [Concomitant]
     Active Substance: LANSOPRAZOLE
     Indication: Product used for unknown indication
     Dosage: 30 MG, QD
     Route: 065
     Dates: start: 2018
  10. FUROSEMIDE [Concomitant]
     Active Substance: FUROSEMIDE
     Indication: Product used for unknown indication
     Dosage: 40 MG, BID (1-1-0)
     Route: 065
     Dates: start: 2018
  11. FUROSEMIDE [Concomitant]
     Active Substance: FUROSEMIDE
     Dosage: 40 MG, 2-1-0 AND 1-1-0 EVERY OTHER DAY
     Route: 065
  12. MAGNESIUM LACTATE [Concomitant]
     Active Substance: MAGNESIUM LACTATE
     Indication: Product used for unknown indication
     Dosage: 0.5 G, QD (1-0-0)
     Route: 065
     Dates: start: 2018
  13. ALLOPURINOL [Concomitant]
     Active Substance: ALLOPURINOL
     Indication: Product used for unknown indication
     Dosage: 100 MG, 2-0-0
     Route: 065
     Dates: start: 2018
  14. BISOPROLOL FUMARATE\PERINDOPRIL ARGININE [Concomitant]
     Active Substance: BISOPROLOL FUMARATE\PERINDOPRIL ARGININE
     Indication: Product used for unknown indication
     Dosage: 10/5 MG, 1-0-0
     Route: 065
     Dates: end: 20210929
  15. CORDARONE [Concomitant]
     Active Substance: AMIODARONE HYDROCHLORIDE
     Indication: Arrhythmia
     Dosage: 200 MG, TID (1ST WEEK 1-1-1)
     Route: 065
     Dates: start: 2021
  16. CORDARONE [Concomitant]
     Active Substance: AMIODARONE HYDROCHLORIDE
     Dosage: 200 MG, BID (2ND WEEK 1-0-1)
     Route: 065
  17. CORDARONE [Concomitant]
     Active Substance: AMIODARONE HYDROCHLORIDE
     Dosage: 200 MG, QD (3RD WEEK 1-0-0)
     Route: 065
  18. URIZIA [Concomitant]
     Indication: Product used for unknown indication
     Dosage: 6 / 0.4 MG 0-0-1
     Route: 065
     Dates: start: 2021
  19. TOUJEO [Concomitant]
     Active Substance: INSULIN GLARGINE
     Indication: Diabetes mellitus
     Dosage: 0-0-0-34 U
     Route: 058
     Dates: start: 2021

REACTIONS (7)
  - Hypertension [Recovered/Resolved]
  - Vomiting [Unknown]
  - Depressed mood [Unknown]
  - Drug intolerance [Unknown]
  - Dizziness [Recovered/Resolved]
  - Arthralgia [Unknown]
  - Nausea [Recovered/Resolved]

NARRATIVE: CASE EVENT DATE: 20180101
